FAERS Safety Report 4940904-4 (Version None)
Quarter: 2006Q1

REPORT INFORMATION
  Report Type: 
  Country: None (occurrence: None)
  Receive Date: 20060313
  Receipt Date: 20060302
  Transmission Date: 20060701
  Serious: Yes (Other)
  Sender: FDA-Public Use
  Company Number: DE-JNJFOC-20060105659

PATIENT
  Sex: Female
  Weight: 60 kg

DRUGS (4)
  1. SEMPERA [Suspect]
     Route: 048
  2. SEMPERA [Suspect]
     Indication: SINUSITIS
     Route: 048
  3. SEMPERA [Suspect]
     Route: 048
  4. INTRAUTERINE DEVICE [Concomitant]
     Dates: start: 20030101

REACTIONS (5)
  - ADRENAL CORTICAL INSUFFICIENCY [None]
  - BLOOD PRESSURE INCREASED [None]
  - PARAESTHESIA [None]
  - RESTLESSNESS [None]
  - TACHYCARDIA [None]
